FAERS Safety Report 6475464-2 (Version None)
Quarter: 2009Q4

REPORT INFORMATION
  Report Type: 
  Country: None (occurrence: None)
  Receive Date: 20091204
  Receipt Date: 20091123
  Transmission Date: 20100525
  Serious: Yes (Hospitalization, Other)
  Sender: FDA-Public Use
  Company Number: PHHY2009IT51546

PATIENT
  Age: 35 Year
  Sex: Female

DRUGS (9)
  1. CYCLOSPORINE [Suspect]
     Indication: RENAL TRANSPLANT
     Dosage: UNK
     Dates: start: 20010101
  2. CYCLOSPORINE [Suspect]
     Dosage: 125 MG, BID
     Dates: start: 20050101
  3. PREDNISONE [Concomitant]
     Indication: RENAL TRANSPLANT
     Dosage: UNK
     Dates: start: 20010101
  4. PREDNISONE [Concomitant]
     Dosage: 7.5 MG /DAY
     Dates: start: 20050101
  5. EVEROLIMUS [Concomitant]
     Indication: RENAL TRANSPLANT
  6. BASILIXIMAB [Concomitant]
     Indication: RENAL TRANSPLANT
  7. BETAMETHASONE [Concomitant]
     Dosage: 12 MG, QD
     Route: 030
  8. ANTIBIOTICS [Concomitant]
     Indication: PROPHYLAXIS
  9. CORTICOSTEROIDS [Concomitant]

REACTIONS (13)
  - ARTERIOSCLEROSIS [None]
  - CAESAREAN SECTION [None]
  - CYTOMEGALOVIRUS TEST POSITIVE [None]
  - DRUG EXPOSURE DURING PREGNANCY [None]
  - GLOMERULONEPHROPATHY [None]
  - HYPERTENSION [None]
  - KIDNEY FIBROSIS [None]
  - KIDNEY TRANSPLANT REJECTION [None]
  - LACTATION INHIBITION THERAPY [None]
  - PREMATURE BABY [None]
  - PREMATURE RUPTURE OF MEMBRANES [None]
  - TOXOPLASMA SEROLOGY POSITIVE [None]
  - URINARY TRACT INFECTION [None]
